FAERS Safety Report 13661116 (Version 2)
Quarter: 2017Q3

REPORT INFORMATION
  Report Type: Spontaneous
  Country: US (occurrence: US)
  Receive Date: 20170616
  Receipt Date: 20170720
  Transmission Date: 20171127
  Serious: Yes (Other)
  Sender: FDA-Public Use
  Company Number: US-SA-2017SA108451

PATIENT
  Age: 55 Year
  Sex: Female

DRUGS (16)
  1. MELATONIN [Concomitant]
     Active Substance: MELATONIN
  2. XALATAN [Concomitant]
     Active Substance: LATANOPROST
  3. SYNTHROID [Concomitant]
     Active Substance: LEVOTHYROXINE SODIUM
  4. LEVOTHYROXINE SODIUM. [Concomitant]
     Active Substance: LEVOTHYROXINE SODIUM
  5. ALPRAZOLAM. [Concomitant]
     Active Substance: ALPRAZOLAM
  6. VITAMIN D [Concomitant]
     Active Substance: CHOLECALCIFEROL
  7. SERTRALINE HYDROCHLORIDE. [Concomitant]
     Active Substance: SERTRALINE HYDROCHLORIDE
  8. AMPYRA [Concomitant]
     Active Substance: DALFAMPRIDINE
  9. FLAXSEED [Concomitant]
     Active Substance: FLAX SEED
  10. MELOXICAM. [Concomitant]
     Active Substance: MELOXICAM
  11. MOBIC [Concomitant]
     Active Substance: MELOXICAM
  12. BRIMONIDINE TARTRATE. [Concomitant]
     Active Substance: BRIMONIDINE TARTRATE
  13. BIMATOPROST. [Concomitant]
     Active Substance: BIMATOPROST
  14. AUBAGIO [Suspect]
     Active Substance: TERIFLUNOMIDE
     Indication: MULTIPLE SCLEROSIS
     Route: 048
     Dates: start: 2017
  15. DORZOLAMIDE HYDROCHLORIDE/TIMOLOL MALEATE [Concomitant]
  16. VITAMIN B12 [Concomitant]
     Active Substance: CYANOCOBALAMIN

REACTIONS (1)
  - Latent tuberculosis [Unknown]
